FAERS Safety Report 4781520-7 (Version None)
Quarter: 2005Q3

REPORT INFORMATION
  Report Type: 
  Country: None (occurrence: None)
  Receive Date: 20050928
  Receipt Date: 20050919
  Transmission Date: 20060218
  Serious: Yes (Other)
  Sender: FDA-Public Use
  Company Number: DE-SANOFI-SYNTHELABO-A01200506385

PATIENT
  Sex: Male

DRUGS (4)
  1. ISCOVER [Suspect]
     Indication: CORONARY ARTERY DISEASE
     Route: 048
     Dates: start: 20050601, end: 20050909
  2. SIMVASTATIN [Interacting]
     Indication: CORONARY ARTERY DISEASE
     Route: 048
     Dates: start: 20050601, end: 20050909
  3. LISINOPRIL [Interacting]
     Indication: CORONARY ARTERY DISEASE
     Route: 048
     Dates: start: 20050601, end: 20050909
  4. ASPIRIN [Interacting]
     Indication: CORONARY ARTERY DISEASE
     Route: 048

REACTIONS (4)
  - DRUG INTERACTION [None]
  - HEPATIC FAILURE [None]
  - PANCREATITIS [None]
  - RIGHT VENTRICULAR FAILURE [None]
